FAERS Safety Report 9525369 (Version 1)
Quarter: 2013Q1

REPORT INFORMATION
  Report Type: Spontaneous
  Country: US (occurrence: None)
  Receive Date: 20130314
  Receipt Date: 20130314
  Transmission Date: 20140127
  Serious: No
  Sender: FDA-Public Use
  Company Number: 1212USA007000

PATIENT
  Age: 53 Year
  Sex: Male

DRUGS (7)
  1. VICTRELIS (BOCEPREVIR) CAPSULE, 200MG [Suspect]
     Indication: HEPATITIS C
     Route: 048
     Dates: start: 201209, end: 20121205
  2. CALAMINE (CALAMINE) LOTION [Concomitant]
  3. DOXEPIN HYDROCHLORIDE (DOXEPIN HYDROCHLORIDE) [Concomitant]
  4. FLUNISOLIDE (FLUNISOLIDE) [Concomitant]
  5. MECLIZINE (MECLIZINE) [Concomitant]
  6. MAGNESIUM OXIDE (MAGNESIUM OXIDE) [Concomitant]
  7. TERAZOSIN HYDROCHLORIDE (TERAZOSIN HYDROCHLORIDE) [Concomitant]

REACTIONS (2)
  - Haemoglobin decreased [None]
  - Neutrophil count decreased [None]
